FAERS Safety Report 20666558 (Version 3)
Quarter: 2022Q4

REPORT INFORMATION
  Report Type: Spontaneous
  Country: US (occurrence: US)
  Receive Date: 20220403
  Receipt Date: 20221004
  Transmission Date: 20230113
  Serious: No
  Sender: FDA-Public Use
  Company Number: US-SA-SAC20220331000408

PATIENT
  Age: 27 Year
  Sex: Female

DRUGS (2)
  1. DUPIXENT [Suspect]
     Active Substance: DUPILUMAB
     Dosage: 300 MG
     Route: 058
     Dates: start: 202203
  2. DUPIXENT [Suspect]
     Active Substance: DUPILUMAB
     Dosage: 300 MG, 1X (1 INJECTION) (FREQUENCY: OTHER)
     Route: 058
     Dates: start: 20220328, end: 20220328

REACTIONS (4)
  - Dry eye [Unknown]
  - Eye pruritus [Unknown]
  - Pruritus [Unknown]
  - Sunburn [Unknown]

NARRATIVE: CASE EVENT DATE: 20220301
